FAERS Safety Report 10184692 (Version 1)
Quarter: 2014Q2

REPORT INFORMATION
  Report Type: Spontaneous
  Country: US (occurrence: None)
  Receive Date: 20140519
  Receipt Date: 20140519
  Transmission Date: 20141212
  Serious: No
  Sender: FDA-Public Use
  Company Number: 2014-00069

PATIENT
  Sex: Male

DRUGS (1)
  1. UNSPECIFIED ZICAM PRODUCT [Suspect]
     Dosage: UNSPECIFIED ORAL USE

REACTIONS (1)
  - Hypogeusia [None]
